FAERS Safety Report 8498803-X (Version None)
Quarter: 2012Q3

REPORT INFORMATION
  Report Type: 
  Country: None (occurrence: None)
  Receive Date: 20120709
  Receipt Date: 20120629
  Transmission Date: 20120928
  Serious: Yes (Death)
  Sender: FDA-Public Use
  Company Number: JP-AMGEN-JPNSP2012040514

PATIENT
  Age: 85 Year
  Sex: Male

DRUGS (1)
  1. ROMIPLATE [Suspect]
     Indication: PRODUCT USED FOR UNKNOWN INDICATION
     Dosage: THE STARTING DOSE IS 10 MUG/KG
     Route: 058
     Dates: start: 20120201, end: 20120615

REACTIONS (1)
  - CEREBRAL HAEMORRHAGE [None]
